FAERS Safety Report 15329736 (Version 1)
Quarter: 2018Q3

REPORT INFORMATION
  Report Type: Spontaneous
  Country: CA (occurrence: CA)
  Receive Date: 20180829
  Receipt Date: 20180829
  Transmission Date: 20181010
  Serious: Yes (Other)
  Sender: FDA-Public Use
  Company Number: CA-PFIZER INC-2018341453

PATIENT
  Sex: Male

DRUGS (6)
  1. ATIVAN [Suspect]
     Active Substance: LORAZEPAM
     Dosage: 0.5 MG, AS NEEDED
     Route: 060
  2. ASPIRIN (E.C.) [Concomitant]
     Active Substance: ASPIRIN
     Dosage: 81 MG, UNK
  3. PANTOLOC [PANTOPRAZOLE] [Concomitant]
     Indication: HYPERCHLORHYDRIA
  4. PANTOLOC [PANTOPRAZOLE] [Concomitant]
     Indication: HERNIA
     Dosage: 40 MG, UNK
  5. ALTACE [Concomitant]
     Active Substance: RAMIPRIL
     Indication: BLOOD PRESSURE MEASUREMENT
     Dosage: 2.5 MG, UNK
  6. LIPITOR [Concomitant]
     Active Substance: ATORVASTATIN CALCIUM
     Dosage: 80 MG, 1X/DAY

REACTIONS (5)
  - Dysgeusia [Unknown]
  - Myocardial infarction [Unknown]
  - Hypersomnia [Unknown]
  - Paraesthesia [Unknown]
  - Somnolence [Unknown]

NARRATIVE: CASE EVENT DATE: 2017
